FAERS Safety Report 11587805 (Version 9)
Quarter: 2016Q2

REPORT INFORMATION
  Report Type: Report from Study
  Country: AR (occurrence: AR)
  Receive Date: 20151001
  Receipt Date: 20160525
  Transmission Date: 20160815
  Serious: Yes (Death, Life-Threatening, Hospitalization, Other)
  Sender: FDA-Public Use
  Company Number: PHHO2015AR002434

PATIENT
  Age: 48 Year
  Sex: Female
  Weight: 54 kg

DRUGS (3)
  1. NO TREATMENT RECEIVED [Suspect]
     Active Substance: UNSPECIFIED INGREDIENT
     Indication: RENAL TRANSPLANT
     Dosage: NO TREATMENT
     Route: 048
  2. MYFORTIC [Suspect]
     Active Substance: MYCOPHENOLATE SODIUM
     Indication: RENAL TRANSPLANT
     Dosage: 720 MG
     Route: 048
     Dates: start: 20140724, end: 20151012
  3. PROGRAF [Suspect]
     Active Substance: TACROLIMUS\TACROLIMUS ANHYDROUS
     Indication: RENAL TRANSPLANT
     Dosage: 2 MG, QD
     Route: 048
     Dates: start: 20140724, end: 20151012

REACTIONS (6)
  - Respiratory tract infection [Fatal]
  - Renal impairment [Recovered/Resolved]
  - Diarrhoea [Recovered/Resolved]
  - Oral candidiasis [Recovered/Resolved]
  - Kidney transplant rejection [Recovered/Resolved]
  - Herpes simplex [Recovered/Resolved]

NARRATIVE: CASE EVENT DATE: 20150213
